FAERS Safety Report 14208060 (Version 1)
Quarter: 2017Q4

REPORT INFORMATION
  Report Type: Spontaneous
  Country: US (occurrence: US)
  Receive Date: 20171120
  Receipt Date: 20171120
  Transmission Date: 20180321
  Serious: Yes (Hospitalization)
  Sender: FDA-Public Use
  Company Number: None

PATIENT
  Age: 49 Year
  Sex: Male
  Weight: 78 kg

DRUGS (1)
  1. MODAFIL MD [Suspect]
     Active Substance: MODAFINIL
     Indication: NARCOLEPSY
     Dosage: ?          QUANTITY:100 TABLET(S);?
     Route: 048
     Dates: start: 20171106, end: 20171108

REACTIONS (6)
  - Diarrhoea [None]
  - Abdominal pain upper [None]
  - Impaired driving ability [None]
  - Product quality issue [None]
  - Drug ineffective [None]
  - Product counterfeit [None]

NARRATIVE: CASE EVENT DATE: 20171108
